FAERS Safety Report 8036346-8 (Version None)
Quarter: 2012Q1

REPORT INFORMATION
  Report Type: 
  Country: None (occurrence: None)
  Receive Date: 20120111
  Receipt Date: 20111207
  Transmission Date: 20120608
  Serious: No
  Sender: FDA-Public Use
  Company Number: US-GLAXOSMITHKLINE-A0957121A

PATIENT
  Age: 82 Year
  Sex: Male

DRUGS (7)
  1. OXYCODONE/ACETAMINOPHEN [Concomitant]
  2. ENALAPRIL MALEATE [Concomitant]
  3. FINASTERIDE [Concomitant]
  4. ADVAIR DISKUS 100/50 [Concomitant]
  5. LIPITOR [Concomitant]
  6. PROPRANOLOL [Concomitant]
  7. JALYN [Suspect]
     Indication: BENIGN PROSTATIC HYPERPLASIA
     Dosage: 1CAP PER DAY
     Route: 048
     Dates: start: 20111025

REACTIONS (1)
  - OEDEMA PERIPHERAL [None]
